FAERS Safety Report 10354400 (Version 1)
Quarter: 2014Q3

REPORT INFORMATION
  Report Type: Spontaneous
  Country: US (occurrence: US)
  Receive Date: 20140731
  Receipt Date: 20140731
  Transmission Date: 20150326
  Serious: Yes (Hospitalization, Other)
  Sender: FDA-Public Use
  Company Number: US-SA-2014SA099916

PATIENT
  Age: 35 Year
  Sex: Male
  Weight: 128 kg

DRUGS (36)
  1. THYMOGLOBULIN [Suspect]
     Active Substance: LAPINE T-LYMPHOCYTE IMMUNE GLOBULIN
     Indication: BONE MARROW CONDITIONING REGIMEN
     Route: 042
     Dates: start: 20140425, end: 20140425
  2. CYCLOPHOSPHAMIDE. [Concomitant]
     Active Substance: CYCLOPHOSPHAMIDE
     Dates: start: 20140426, end: 20140427
  3. METHYLPREDNISOLONE [Concomitant]
     Active Substance: METHYLPREDNISOLONE
     Dates: start: 20140425, end: 20140425
  4. VITAMIN K [Concomitant]
     Active Substance: PHYTONADIONE
     Dates: start: 20140425
  5. PROCHLORPERAZINE. [Concomitant]
     Active Substance: PROCHLORPERAZINE
     Dates: start: 20140422, end: 20140426
  6. DIPHENHYDRAMINE [Concomitant]
     Active Substance: DIPHENHYDRAMINE
     Dates: start: 20140426, end: 20140428
  7. FAMOTIDINE. [Concomitant]
     Active Substance: FAMOTIDINE
     Dates: start: 20140426, end: 20140427
  8. HYDROMORPHONE [Concomitant]
     Active Substance: HYDROMORPHONE
     Dates: start: 20140426, end: 20140427
  9. ALL OTHER THERAPEUTIC PRODUCTS [Concomitant]
     Active Substance: UNSPECIFIED INGREDIENT
     Dates: start: 20140423
  10. ANDROGEL [Concomitant]
     Active Substance: TESTOSTERONE
     Dates: start: 20131101, end: 20140422
  11. ESCITALOPRAM [Concomitant]
     Active Substance: ESCITALOPRAM OXALATE
     Dates: start: 20130401
  12. MAALOX ANTACID [Concomitant]
     Active Substance: ALUMINUM HYDROXIDE\DIMETHICONE\MAGNESIUM HYDROXIDE
     Dates: start: 20140426
  13. LORAZEPAM. [Concomitant]
     Active Substance: LORAZEPAM
     Dates: start: 20140424
  14. DIPHENHYDRAMINE [Concomitant]
     Active Substance: DIPHENHYDRAMINE
     Dates: start: 20140422
  15. OXYCODONE [Concomitant]
     Active Substance: OXYCODONE
     Dates: start: 20140423
  16. BLINDED THERAPY [Suspect]
     Active Substance: UNSPECIFIED INGREDIENT
     Indication: PROPHYLAXIS
     Route: 048
     Dates: start: 20140424
  17. NICOTINE. [Concomitant]
     Active Substance: NICOTINE
     Dates: start: 20140422
  18. MORPHINE [Concomitant]
     Active Substance: MORPHINE
     Dates: start: 20140425
  19. MESNA. [Concomitant]
     Active Substance: MESNA
     Dates: start: 20140426, end: 20140426
  20. MESNA. [Concomitant]
     Active Substance: MESNA
     Dates: start: 20140426, end: 20140427
  21. METHYLPREDNISOLONE [Concomitant]
     Active Substance: METHYLPREDNISOLONE
     Dates: start: 20140425, end: 20140427
  22. POTASSIUM CHLORIDE. [Concomitant]
     Active Substance: POTASSIUM CHLORIDE
     Dates: start: 20140422
  23. FENTANYL. [Concomitant]
     Active Substance: FENTANYL
     Dates: start: 20140422, end: 20140422
  24. MIDAZOLAM [Concomitant]
     Active Substance: MIDAZOLAM\MIDAZOLAM HYDROCHLORIDE
     Dates: start: 20140422, end: 20140422
  25. THYMOGLOBULIN [Suspect]
     Active Substance: LAPINE T-LYMPHOCYTE IMMUNE GLOBULIN
     Indication: BONE MARROW CONDITIONING REGIMEN
     Route: 042
     Dates: start: 20140427, end: 20140427
  26. BUSULFAN [Concomitant]
     Active Substance: BUSULFAN
     Dates: start: 20140424, end: 20140426
  27. ANTIEMETICS AND ANTINAUSEANTS [Concomitant]
     Active Substance: UNSPECIFIED INGREDIENT
     Dates: start: 20140426, end: 20140426
  28. LEVETIRACETAM. [Concomitant]
     Active Substance: LEVETIRACETAM
     Dates: start: 20140421, end: 20140426
  29. LORTAB [Concomitant]
     Active Substance: ACETAMINOPHEN\HYDROCODONE BITARTRATE
     Dates: start: 20130401, end: 20140422
  30. CEFAZOLIN [Concomitant]
     Active Substance: CEFAZOLIN
     Dates: start: 20140422, end: 20140422
  31. THYMOGLOBULIN [Suspect]
     Active Substance: LAPINE T-LYMPHOCYTE IMMUNE GLOBULIN
     Indication: BONE MARROW CONDITIONING REGIMEN
     Route: 042
     Dates: start: 20140426, end: 20140426
  32. MAGNESIUM SULFATE [Concomitant]
     Active Substance: MAGNESIUM SULFATE
     Dates: start: 20140424
  33. ONDANSETRON [Concomitant]
     Active Substance: ONDANSETRON
     Dates: start: 20140422
  34. ONDANSETRON [Concomitant]
     Active Substance: ONDANSETRON
     Dates: start: 20140425
  35. ALPRAZOLAM. [Concomitant]
     Active Substance: ALPRAZOLAM
     Dates: start: 20130401
  36. ZOLPIDEM [Concomitant]
     Active Substance: ZOLPIDEM\ZOLPIDEM TARTRATE
     Dates: start: 20140424

REACTIONS (17)
  - Hypoxia [Recovered/Resolved]
  - Pulmonary oedema [Unknown]
  - Vomiting [Recovered/Resolved]
  - Heart rate increased [Recovered/Resolved]
  - Chills [Recovered/Resolved]
  - Diarrhoea [Recovered/Resolved]
  - Chest discomfort [Recovered/Resolved]
  - Tachypnoea [Recovered/Resolved]
  - Nausea [Recovered/Resolved]
  - Respiratory failure [Recovered/Resolved]
  - Oxygen saturation decreased [Recovered/Resolved]
  - Tachycardia [Recovered/Resolved]
  - Dyspnoea [Recovered/Resolved]
  - Cough [Recovered/Resolved]
  - Productive cough [Recovered/Resolved]
  - Blood pressure increased [Recovered/Resolved]
  - Pyrexia [Recovered/Resolved]

NARRATIVE: CASE EVENT DATE: 20140427
